FAERS Safety Report 9669281 (Version 1)
Quarter: 2013Q4

REPORT INFORMATION
  Report Type: Spontaneous
  Country: US (occurrence: None)
  Receive Date: 20131104
  Receipt Date: 20131104
  Transmission Date: 20140711
  Serious: No
  Sender: FDA-Public Use
  Company Number: None

PATIENT
  Age: 14 Year
  Sex: Male
  Weight: 52.16 kg

DRUGS (1)
  1. METHYLPHENIDATE ER [Suspect]
     Indication: ATTENTION DEFICIT/HYPERACTIVITY DISORDER
     Dosage: CONCERTA ER 18MG, ONCE DAILY, TAKEN BY MOUTH
     Route: 048
     Dates: start: 20130910, end: 20131101

REACTIONS (3)
  - Drug ineffective [None]
  - Product formulation issue [None]
  - Product physical issue [None]
